FAERS Safety Report 7821922-5 (Version None)
Quarter: 2011Q4

REPORT INFORMATION
  Report Type: 
  Country: None (occurrence: None)
  Receive Date: 20111018
  Receipt Date: 20110708
  Transmission Date: 20120403
  Serious: No
  Sender: FDA-Public Use
  Company Number: US-ASTRAZENECA-2011SE41481

PATIENT
  Age: 18983 Day
  Sex: Male

DRUGS (9)
  1. SYMBICORT [Suspect]
     Dosage: 160/4.5MCG, UNKNOWN
     Route: 055
     Dates: start: 20090602
  2. ALBUTEROL SULFATE [Concomitant]
  3. PULMICORT [Concomitant]
  4. VITAMIN D [Concomitant]
  5. PROAIR HFA [Concomitant]
  6. MUCINEX [Concomitant]
  7. SPIRIVA [Concomitant]
  8. PREDNISONE [Concomitant]
  9. CHANTIX [Concomitant]

REACTIONS (2)
  - VITAMIN D DEFICIENCY [None]
  - BRONCHITIS [None]
